FAERS Safety Report 8302103-8 (Version None)
Quarter: 2012Q2

REPORT INFORMATION
  Report Type: 
  Country: None (occurrence: None)
  Receive Date: 20120420
  Receipt Date: 20120417
  Transmission Date: 20120825
  Serious: Yes (Death)
  Sender: FDA-Public Use
  Company Number: US-CELGENEUS-163-21880-12032425

PATIENT
  Sex: Female

DRUGS (3)
  1. REVLIMID [Suspect]
     Indication: MULTIPLE MYELOMA
     Dosage: 25 MILLIGRAM
     Route: 048
     Dates: start: 20120101, end: 20120302
  2. COUMADIN [Concomitant]
     Indication: THROMBOSIS PROPHYLAXIS
     Dosage: 5MG-2.5MG
     Route: 048
     Dates: start: 20120109
  3. ZOMETA [Concomitant]
     Indication: BONE LESION
     Dosage: 4 MILLIGRAM
     Route: 041
     Dates: start: 20111225, end: 20120227

REACTIONS (1)
  - MYOCARDIAL INFARCTION [None]
